FAERS Safety Report 13181843 (Version 1)
Quarter: 2017Q1

REPORT INFORMATION
  Report Type: Spontaneous
  Country: US (occurrence: US)
  Receive Date: 20170202
  Receipt Date: 20170202
  Transmission Date: 20170428
  Serious: No
  Sender: FDA-Public Use
  Company Number: US-IMPAX LABORATORIES, INC-2016-IPXL-01476

PATIENT
  Sex: Male
  Weight: 81 kg

DRUGS (1)
  1. RYTARY [Suspect]
     Active Substance: CARBIDOPA\LEVODOPA
     Indication: PRODUCT USED FOR UNKNOWN INDICATION
     Dosage: 100 MG, ONE CAPSULE EVERY THREE HOURS SIX TIMES A DAY
     Route: 048
     Dates: start: 2015, end: 2016

REACTIONS (3)
  - Tremor [Unknown]
  - Drug ineffective [Unknown]
  - Drug effect incomplete [Unknown]
